FAERS Safety Report 17100179 (Version 2)
Quarter: 2019Q4

REPORT INFORMATION
  Report Type: Spontaneous
  Country: DE (occurrence: DE)
  Receive Date: 20191202
  Receipt Date: 20191204
  Transmission Date: 20200122
  Serious: Yes (Other)
  Sender: FDA-Public Use
  Company Number: DE-ASTRAZENECA-2019SF70550

PATIENT
  Sex: Male

DRUGS (2)
  1. NEXIUM MUPS [Suspect]
     Active Substance: ESOMEPRAZOLE
     Route: 048
  2. FASENRA [Suspect]
     Active Substance: BENRALIZUMAB
     Route: 058

REACTIONS (1)
  - Deep vein thrombosis [Unknown]
